FAERS Safety Report 22254339 (Version 1)
Quarter: 2023Q2

REPORT INFORMATION
  Report Type: Spontaneous
  Country: US (occurrence: US)
  Receive Date: 20230426
  Receipt Date: 20230426
  Transmission Date: 20230721
  Serious: No
  Sender: FDA-Public Use
  Company Number: US-drreddys-SPO/USA/23/0163138

PATIENT
  Age: 58 Year
  Sex: Female

DRUGS (15)
  1. LAMOTRIGINE [Suspect]
     Active Substance: LAMOTRIGINE
     Indication: Bipolar II disorder
  2. LAMOTRIGINE [Suspect]
     Active Substance: LAMOTRIGINE
     Indication: Mood swings
     Dosage: NIGHTLY
     Dates: start: 2015
  3. LAMOTRIGINE [Suspect]
     Active Substance: LAMOTRIGINE
     Indication: Bipolar disorder
  4. DULOXETINE [Suspect]
     Active Substance: DULOXETINE
     Indication: Bipolar II disorder
  5. DULOXETINE [Suspect]
     Active Substance: DULOXETINE
     Indication: Bipolar disorder
  6. DULOXETINE [Suspect]
     Active Substance: DULOXETINE
     Indication: Mood swings
  7. GABAPENTIN [Suspect]
     Active Substance: GABAPENTIN
     Indication: Mood swings
  8. GABAPENTIN [Suspect]
     Active Substance: GABAPENTIN
     Indication: Bipolar II disorder
  9. GABAPENTIN [Suspect]
     Active Substance: GABAPENTIN
     Indication: Bipolar disorder
  10. BUPROPION [Suspect]
     Active Substance: BUPROPION
     Indication: Bipolar II disorder
  11. BUPROPION [Suspect]
     Active Substance: BUPROPION
     Indication: Mood swings
  12. BUPROPION [Suspect]
     Active Substance: BUPROPION
     Indication: Bipolar disorder
  13. TRAZODONE [Suspect]
     Active Substance: TRAZODONE HYDROCHLORIDE
     Indication: Bipolar disorder
     Dosage: AT BEDTIME
  14. TRAZODONE [Suspect]
     Active Substance: TRAZODONE HYDROCHLORIDE
     Indication: Bipolar II disorder
  15. TRAZODONE [Suspect]
     Active Substance: TRAZODONE HYDROCHLORIDE
     Indication: Mood swings

REACTIONS (1)
  - Chorea [Recovered/Resolved]
